FAERS Safety Report 16321510 (Version 1)
Quarter: 2019Q2

REPORT INFORMATION
  Report Type: Report from Study
  Country: JP (occurrence: JP)
  Receive Date: 20190516
  Receipt Date: 20190516
  Transmission Date: 20190711
  Serious: Yes (Other)
  Sender: FDA-Public Use
  Company Number: JP-AMGEN-JPNNI2019076084

PATIENT
  Age: 74 Year
  Sex: Male
  Weight: 64.8 kg

DRUGS (9)
  1. RANMARK [Suspect]
     Active Substance: DENOSUMAB
     Indication: PRODUCT USED FOR UNKNOWN INDICATION
     Dosage: UNK
     Route: 065
  2. DEXAMETHASONE. [Concomitant]
     Active Substance: DEXAMETHASONE
     Dosage: 12 MG,(20/9/2017,27/9,4/10,18/10,25/10,1/11,15/11)
     Route: 065
     Dates: start: 20170920, end: 20171115
  3. CARFILZOMIB [Suspect]
     Active Substance: CARFILZOMIB
     Dosage: 27 MG/M2,(20/9/2017,27/9,4/10,18/10,25/10,1/11,15/11,22/11,29/11)
     Route: 041
     Dates: start: 20170920, end: 20171129
  4. CARFILZOMIB [Suspect]
     Active Substance: CARFILZOMIB
     Dosage: 31 MG/M2,(13/12/2017,20/12,27/12)
     Route: 041
     Dates: start: 20171213
  5. DEXAMETHASONE. [Concomitant]
     Active Substance: DEXAMETHASONE
     Indication: PLASMA CELL MYELOMA
     Dosage: 12 MG,(26/7/2017,27/7,2/8,3/8,9/8,10/8,23/8,30/8,6/9)
     Route: 065
     Dates: start: 20170726, end: 20170906
  6. DEXAMETHASONE. [Concomitant]
     Active Substance: DEXAMETHASONE
     Dosage: 4 MG,(22/11/2017,29/11,13/12,20/12,27/12)
     Route: 065
     Dates: start: 20171122, end: 20171227
  7. CARFILZOMIB [Suspect]
     Active Substance: CARFILZOMIB
     Indication: PLASMA CELL MYELOMA
     Dosage: 20 MG/M2, (26/7/2017,27/7)
     Route: 041
     Dates: start: 20170726, end: 20170727
  8. CARFILZOMIB [Suspect]
     Active Substance: CARFILZOMIB
     Dosage: 27 MG/M2,(2/8/2017,3/8,9/8,10/8,23/8,30/8,6/9)
     Route: 041
     Dates: start: 20170802, end: 20170906
  9. ZOVIRAX [Concomitant]
     Active Substance: ACYCLOVIR
     Indication: ANTIVIRAL PROPHYLAXIS
     Dosage: 200 MILLIGRAM
     Route: 065

REACTIONS (2)
  - Osteonecrosis of jaw [Recovered/Resolved]
  - Platelet count decreased [Recovered/Resolved]

NARRATIVE: CASE EVENT DATE: 20170812
